FAERS Safety Report 15693131 (Version 1)
Quarter: 2018Q4

REPORT INFORMATION
  Report Type: Spontaneous
  Country: CA (occurrence: CA)
  Receive Date: 20181206
  Receipt Date: 20181206
  Transmission Date: 20190205
  Serious: Yes (Other)
  Sender: FDA-Public Use
  Company Number: CA-ROCHE-2223972

PATIENT
  Age: 47 Year
  Sex: Female

DRUGS (2)
  1. RITUXAN [Suspect]
     Active Substance: RITUXIMAB
     Indication: PRODUCT USED FOR UNKNOWN INDICATION
     Route: 065
  2. ACTEMRA [Suspect]
     Active Substance: TOCILIZUMAB
     Indication: PRODUCT USED FOR UNKNOWN INDICATION
     Route: 065

REACTIONS (10)
  - Osteomyelitis [Unknown]
  - Musculoskeletal pain [Unknown]
  - Swelling [Unknown]
  - Joint swelling [Unknown]
  - Back pain [Unknown]
  - Infection [Unknown]
  - Sensitivity to weather change [Unknown]
  - Liver function test increased [Unknown]
  - Dyspnoea [Unknown]
  - Drug ineffective [Unknown]
